FAERS Safety Report 25820840 (Version 1)
Quarter: 2025Q3

REPORT INFORMATION
  Report Type: Spontaneous
  Country: GB (occurrence: GB)
  Receive Date: 20250919
  Receipt Date: 20250919
  Transmission Date: 20251021
  Serious: Yes (Hospitalization, Other)
  Sender: ACCORD
  Company Number: None

PATIENT
  Age: 75 Year
  Sex: Male

DRUGS (2)
  1. FUROSEMIDE [Suspect]
     Active Substance: FUROSEMIDE
     Indication: Product used for unknown indication
  2. PENBUTOLOL SULFATE [Suspect]
     Active Substance: PENBUTOLOL SULFATE
     Indication: Product used for unknown indication

REACTIONS (1)
  - Syncope [Not Recovered/Not Resolved]
